FAERS Safety Report 17424527 (Version 4)
Quarter: 2020Q2

REPORT INFORMATION
  Report Type: Spontaneous
  Country: US (occurrence: US)
  Receive Date: 20200217
  Receipt Date: 20200426
  Transmission Date: 20200713
  Serious: Yes (Other)
  Sender: FDA-Public Use
  Company Number: US-INCYTE CORPORATION-2020IN001281

PATIENT

DRUGS (5)
  1. JAKAFI [Suspect]
     Active Substance: RUXOLITINIB
     Dosage: 10 MILLIGRAM, BID
     Route: 048
     Dates: start: 20200129
  2. JAKAFI [Suspect]
     Active Substance: RUXOLITINIB
     Dosage: UNK
     Route: 065
     Dates: start: 20200318
  3. PREDNISONE. [Concomitant]
     Active Substance: PREDNISONE
     Indication: PRODUCT USED FOR UNKNOWN INDICATION
     Route: 065
  4. PANTOPRAZOLE [Concomitant]
     Active Substance: PANTOPRAZOLE
     Indication: PRODUCT USED FOR UNKNOWN INDICATION
     Route: 065
  5. JAKAFI [Suspect]
     Active Substance: RUXOLITINIB
     Indication: ACUTE GRAFT VERSUS HOST DISEASE
     Dosage: 10 MILLIGRAM, BID
     Route: 048
     Dates: start: 20200128

REACTIONS (6)
  - Fatigue [Not Recovered/Not Resolved]
  - Thrombocytopenia [Not Recovered/Not Resolved]
  - Haemoglobin decreased [Not Recovered/Not Resolved]
  - Visual impairment [Not Recovered/Not Resolved]
  - White blood cell count decreased [Not Recovered/Not Resolved]
  - Diarrhoea [Not Recovered/Not Resolved]
